FAERS Safety Report 7454964-2 (Version None)
Quarter: 2011Q2

REPORT INFORMATION
  Report Type: 
  Country: None (occurrence: None)
  Receive Date: 20110503
  Receipt Date: 20110502
  Transmission Date: 20111010
  Serious: Yes (Hospitalization)
  Sender: FDA-Public Use
  Company Number: DE-BRISTOL-MYERS SQUIBB COMPANY-15669559

PATIENT
  Age: 64 Year
  Sex: Female

DRUGS (1)
  1. ORENCIA [Suspect]
     Indication: RHEUMATOID ARTHRITIS
     Dosage: NO OF INF:4,INTERRUPTED LAST DOSE ON:17MAR2011.
     Route: 042
     Dates: start: 20101206

REACTIONS (1)
  - CIRCULATORY COLLAPSE [None]
